FAERS Safety Report 12959367 (Version 3)
Quarter: 2017Q1

REPORT INFORMATION
  Report Type: Report from Study
  Country: AR (occurrence: AR)
  Receive Date: 20161121
  Receipt Date: 20170106
  Transmission Date: 20170428
  Serious: Yes (Hospitalization, Other)
  Sender: FDA-Public Use
  Company Number: PHHY2016AR158791

PATIENT
  Age: 55 Year
  Sex: Female

DRUGS (2)
  1. SANDOSTATIN LAR DEPOT [Suspect]
     Active Substance: OCTREOTIDE ACETATE
     Indication: NEUROENDOCRINE CARCINOMA
     Dosage: 30 MG, QMO
     Route: 065
     Dates: start: 20150122
  2. SANDOSTATIN LAR DEPOT [Suspect]
     Active Substance: OCTREOTIDE ACETATE
     Dosage: 30 MG, QW3 (EVENRY 21 DAYS)
     Route: 065

REACTIONS (9)
  - Hepatic lesion [Unknown]
  - Hepatic neoplasm [Recovering/Resolving]
  - Colitis [Not Recovered/Not Resolved]
  - Inappropriate schedule of drug administration [Unknown]
  - Rash [Not Recovered/Not Resolved]
  - Metastases to small intestine [Not Recovered/Not Resolved]
  - Malignant neoplasm progression [Not Recovered/Not Resolved]
  - Peritoneal lesion [Not Recovered/Not Resolved]
  - Blood chromogranin A increased [Not Recovered/Not Resolved]

NARRATIVE: CASE EVENT DATE: 20161024
